FAERS Safety Report 7356029-7 (Version None)
Quarter: 2011Q1

REPORT INFORMATION
  Report Type: 
  Country: None (occurrence: None)
  Receive Date: 20110310
  Receipt Date: 20110310
  Transmission Date: 20110831
  Serious: Yes (Other)
  Sender: FDA-Public Use
  Company Number: None

PATIENT
  Age: 64 Year
  Sex: Male
  Weight: 90 kg

DRUGS (1)
  1. CLOZAPINE [Suspect]
     Indication: SCHIZOPHRENIA
     Dosage: 27GMG DAILY HS PO
     Route: 048
     Dates: start: 20110201, end: 20110215

REACTIONS (8)
  - INFLUENZA [None]
  - PNEUMONIA [None]
  - MYOCARDITIS [None]
  - TACHYCARDIA [None]
  - ISCHAEMIA [None]
  - PYREXIA [None]
  - ERYTHEMA [None]
  - BLOOD GLUCOSE INCREASED [None]
